FAERS Safety Report 13972117 (Version 5)
Quarter: 2018Q1

REPORT INFORMATION
  Report Type: Spontaneous
  Country: DE (occurrence: DE)
  Receive Date: 20170914
  Receipt Date: 20180312
  Transmission Date: 20180508
  Serious: Yes (Hospitalization, Other)
  Sender: FDA-Public Use
  Company Number: DE-009507513-1709DEU005755

PATIENT
  Age: 23 Year
  Sex: Male
  Weight: 80 kg

DRUGS (1)
  1. MONTELUKAST 10 MG MSD [Suspect]
     Active Substance: MONTELUKAST SODIUM
     Indication: ASTHMA
     Dosage: 5 MG EVERY DAY
     Route: 048
     Dates: start: 20170819, end: 2017

REACTIONS (7)
  - Eosinophilic granulomatosis with polyangiitis [Recovered/Resolved]
  - Lung infiltration [Recovered/Resolved]
  - Eosinophilic bronchitis [Recovered/Resolved]
  - Cutaneous symptom [Recovered/Resolved]
  - Eosinophilia [Recovered/Resolved]
  - Rash [Unknown]
  - Eosinophilic pneumonia [Unknown]

NARRATIVE: CASE EVENT DATE: 20170823
